FAERS Safety Report 7945438-0 (Version None)
Quarter: 2011Q4

REPORT INFORMATION
  Report Type: 
  Country: None (occurrence: None)
  Receive Date: 20111129
  Receipt Date: 20111116
  Transmission Date: 20120403
  Serious: Yes (Hospitalization)
  Sender: FDA-Public Use
  Company Number: KR-ELI_LILLY_AND_COMPANY-KR201111005870

PATIENT
  Age: 79 Year
  Sex: Male
  Weight: 75 kg

DRUGS (2)
  1. HUMALOG MIX 75/25 [Suspect]
     Dosage: 10 U, EACH EVENING
     Route: 058
     Dates: start: 20110907
  2. HUMALOG MIX 75/25 [Suspect]
     Indication: TYPE 2 DIABETES MELLITUS
     Dosage: 32 U, EACH MORNING
     Route: 058
     Dates: start: 20110907

REACTIONS (1)
  - HYPERGLYCAEMIA [None]
